FAERS Safety Report 8989183 (Version 1)
Quarter: 2012Q4

REPORT INFORMATION
  Report Type: Spontaneous
  Country: US (occurrence: None)
  Receive Date: 20121219
  Receipt Date: 20121219
  Transmission Date: 20130627
  Serious: Yes (Death)
  Sender: FDA-Public Use
  Company Number: 2012AP004263

PATIENT
  Age: 24 Year
  Sex: Female

DRUGS (8)
  1. LEVETIRACETAM TABLETS 1000MG (LEVETIRACETAM) [Suspect]
  2. CLONAZEPAM TABLETS, USP [Suspect]
  3. ACETAMINOPHEN [Suspect]
  4. DIPHENHYDRAMINE [Suspect]
  5. HYDROCODONE [Suspect]
  6. HYDROMORPHONE [Suspect]
  7. MEPROBAMATE [Suspect]
  8. METHADONE [Suspect]

REACTIONS (1)
  - Poisoning [None]
